FAERS Safety Report 21017573 (Version 1)
Quarter: 2022Q2

REPORT INFORMATION
  Report Type: Spontaneous
  Country: US (occurrence: None)
  Receive Date: 20220627
  Receipt Date: 20220627
  Transmission Date: 20220721
  Serious: No
  Sender: FDA-Public Use
  Company Number: None

PATIENT
  Age: 53 Year
  Sex: Female
  Weight: 108 kg

DRUGS (3)
  1. SPIRIVA RESPIMAT [Suspect]
     Active Substance: TIOTROPIUM BROMIDE
     Indication: Obstructive airways disorder
     Route: 055
     Dates: start: 20220616, end: 20220625
  2. ACYCLOVIR [Concomitant]
     Active Substance: ACYCLOVIR
  3. MELATONIN [Concomitant]
     Active Substance: MELATONIN

REACTIONS (13)
  - Respiratory tract infection [None]
  - Wheezing [None]
  - Rhinorrhoea [None]
  - Oropharyngeal pain [None]
  - Dry mouth [None]
  - Dehydration [None]
  - Dyspnoea [None]
  - Sputum increased [None]
  - Cough [None]
  - Headache [None]
  - Diarrhoea [None]
  - Nasal discomfort [None]
  - Chest discomfort [None]

NARRATIVE: CASE EVENT DATE: 20220620
